FAERS Safety Report 8293779-2 (Version None)
Quarter: 2012Q2

REPORT INFORMATION
  Report Type: 
  Country: None (occurrence: None)
  Receive Date: 20120418
  Receipt Date: 20120407
  Transmission Date: 20120825
  Serious: Yes (Hospitalization)
  Sender: FDA-Public Use
  Company Number: DE-PAR PHARMACEUTICAL, INC-2012SCPR004315

PATIENT

DRUGS (7)
  1. HALOPERIDOL DECANOATE [Suspect]
     Indication: SCHIZOPHRENIA, CATATONIC TYPE
     Dosage: 100 MG, EVERY 4 WEEKS
     Route: 065
  2. HALOPERIDOL [Suspect]
     Indication: SCHIZOPHRENIA, CATATONIC TYPE
     Dosage: 5 MG, / DAY
     Route: 065
  3. OLANZAPINE [Suspect]
     Indication: SCHIZOPHRENIA, CATATONIC TYPE
     Dosage: 10 MG, / DAY
     Route: 065
  4. OLANZAPINE [Suspect]
     Dosage: 10 MG, SINGLE
     Route: 065
  5. LORAZEPAM [Suspect]
     Indication: SCHIZOPHRENIA, CATATONIC TYPE
     Dosage: 3 TO 4.5 MG PER DAY,DIVIDED INTO THREE SINGLE DOSES
     Route: 048
  6. CLOZAPINE [Suspect]
     Indication: SCHIZOPHRENIA, CATATONIC TYPE
     Dosage: UNK
     Route: 065
  7. HALOPERIDOL [Suspect]
     Dosage: 2 MG, / DAY
     Route: 065

REACTIONS (3)
  - DRUG INTERACTION [None]
  - HYPOTHERMIA [None]
  - OXYGEN SATURATION DECREASED [None]
